FAERS Safety Report 8918848 (Version 1)
Quarter: 2012Q4

REPORT INFORMATION
  Report Type: Spontaneous
  Country: US (occurrence: None)
  Receive Date: 20121115
  Receipt Date: 20121115
  Transmission Date: 20130627
  Serious: Yes (Hospitalization)
  Sender: FDA-Public Use
  Company Number: None

PATIENT
  Sex: Male
  Weight: 139 kg

DRUGS (3)
  1. CISPLATIN [Suspect]
  2. ETOPOSIDE [Suspect]
  3. PLAVIX [Concomitant]

REACTIONS (3)
  - Febrile neutropenia [None]
  - Pancytopenia [None]
  - Haematemesis [None]
